FAERS Safety Report 8166736-4 (Version None)
Quarter: 2012Q1

REPORT INFORMATION
  Report Type: 
  Country: None (occurrence: None)
  Receive Date: 20120227
  Receipt Date: 20120217
  Transmission Date: 20120608
  Serious: Yes (Hospitalization, Other)
  Sender: FDA-Public Use
  Company Number: CA-ROCHE-GNE276727

PATIENT
  Sex: Female
  Weight: 36.039 kg

DRUGS (14)
  1. XOLAIR [Suspect]
     Dosage: 375 MG, Q2W
     Route: 058
     Dates: start: 20100308
  2. BUDESONIDE [Concomitant]
     Indication: PRODUCT USED FOR UNKNOWN INDICATION
  3. SINGULAIR [Concomitant]
     Indication: PRODUCT USED FOR UNKNOWN INDICATION
  4. ALVESCO [Concomitant]
     Indication: PRODUCT USED FOR UNKNOWN INDICATION
  5. NASONEX [Concomitant]
     Indication: PRODUCT USED FOR UNKNOWN INDICATION
  6. XOLAIR [Suspect]
     Dosage: 375 MG, Q2W
     Route: 058
     Dates: start: 20100222
  7. SYNTHROID [Concomitant]
     Indication: PRODUCT USED FOR UNKNOWN INDICATION
  8. XOLAIR [Suspect]
     Dosage: 375 MG, Q2W
     Dates: start: 20091130
  9. XOLAIR [Suspect]
     Indication: ASTHMA
     Dosage: 375 MG, Q2W
     Route: 058
     Dates: start: 20081118
  10. XOLAIR [Suspect]
     Dosage: 375 MG, Q2W
     Route: 058
     Dates: start: 20091214
  11. XOLAIR [Suspect]
     Dosage: 375 MG, Q2W
     Route: 058
     Dates: start: 20091228
  12. FORMOTEROL FUMARATE [Concomitant]
     Indication: PRODUCT USED FOR UNKNOWN INDICATION
  13. SYMBICORT [Concomitant]
     Indication: PRODUCT USED FOR UNKNOWN INDICATION
  14. ANTIBIOTICS (NOT SPECIFIED) [Concomitant]
     Indication: PRODUCT USED FOR UNKNOWN INDICATION

REACTIONS (24)
  - BLOOD PRESSURE DECREASED [None]
  - HAEMATOMA [None]
  - PULMONARY CONGESTION [None]
  - DYSPHONIA [None]
  - HYPOAESTHESIA [None]
  - FATIGUE [None]
  - ASTHMA [None]
  - MYALGIA [None]
  - ECCHYMOSIS [None]
  - NAUSEA [None]
  - PULMONARY FUNCTION TEST ABNORMAL [None]
  - PRODUCTIVE COUGH [None]
  - ARTHRALGIA [None]
  - BRONCHITIS [None]
  - MUSCLE SPASMS [None]
  - MIGRAINE [None]
  - PHOTOPHOBIA [None]
  - PAIN [None]
  - HEADACHE [None]
  - BACK PAIN [None]
  - OEDEMA PERIPHERAL [None]
  - BONE PAIN [None]
  - PARAESTHESIA [None]
  - BURNING SENSATION [None]
